FAERS Safety Report 23894437 (Version 3)
Quarter: 2024Q2

REPORT INFORMATION
  Report Type: Spontaneous
  Country: AU (occurrence: None)
  Receive Date: 20240524
  Receipt Date: 20240608
  Transmission Date: 20240716
  Serious: Yes (Other)
  Sender: FDA-Public Use
  Company Number: AU-ROCHE-3565407

PATIENT
  Age: 90 Year
  Sex: Female

DRUGS (4)
  1. VABYSMO [Suspect]
     Active Substance: FARICIMAB\FARICIMAB-SVOA
     Indication: Choroidal neovascularisation
     Route: 050
     Dates: start: 20230329, end: 20240430
  2. VABYSMO [Concomitant]
     Active Substance: FARICIMAB\FARICIMAB-SVOA
     Indication: Choroidal neovascularisation
     Dates: start: 20240203, end: 20240326
  3. EYLEA [Concomitant]
     Active Substance: AFLIBERCEPT
     Indication: Choroidal neovascularisation
     Dosage: LEFT EYE
     Route: 050
     Dates: start: 20221209, end: 20230203
  4. LUCENTIS [Concomitant]
     Active Substance: RANIBIZUMAB
     Indication: Choroidal neovascularisation
     Route: 050
     Dates: start: 20221004, end: 20221101

REACTIONS (3)
  - Blindness [Recovering/Resolving]
  - Non-infectious endophthalmitis [Recovering/Resolving]
  - Retinal vasculitis [Unknown]

NARRATIVE: CASE EVENT DATE: 20240503
